FAERS Safety Report 16976359 (Version 1)
Quarter: 2019Q4

REPORT INFORMATION
  Report Type: Report from Study
  Country: US (occurrence: US)
  Receive Date: 20191030
  Receipt Date: 20191030
  Transmission Date: 20200122
  Serious: Yes (Other)
  Sender: FDA-Public Use
  Company Number: US-ARIAD PHARMACEUTICALS, INC-2017US008654

PATIENT
  Sex: Female
  Weight: 56 kg

DRUGS (1)
  1. PONATINIB [Suspect]
     Active Substance: PONATINIB
     Indication: CHRONIC MYELOID LEUKAEMIA
     Dosage: 15 MILLIGRAM, QD
     Route: 048
     Dates: start: 20141124

REACTIONS (4)
  - Angiopathy [Unknown]
  - Blood pressure increased [Unknown]
  - Chronic myeloid leukaemia recurrent [Unknown]
  - Rash maculo-papular [Unknown]
